FAERS Safety Report 25167036 (Version 1)
Quarter: 2025Q2

REPORT INFORMATION
  Report Type: Spontaneous
  Country: BR (occurrence: BR)
  Receive Date: 20250407
  Receipt Date: 20250407
  Transmission Date: 20250717
  Serious: Yes (Other)
  Sender: MYLAN
  Company Number: BR-MYLANLABS-2025M1029186

PATIENT
  Age: 65 Year

DRUGS (8)
  1. MOXIFLOXACIN [Suspect]
     Active Substance: MOXIFLOXACIN
     Indication: Antibiotic therapy
     Dosage: 400 MILLIGRAM, QD
  2. DEXAMETHASONE [Suspect]
     Active Substance: DEXAMETHASONE
     Indication: Antiinflammatory therapy
     Dosage: 4 MILLIGRAM, BID (RECEIVED 4-5 DAYS)
  3. DEXAMETHASONE [Suspect]
     Active Substance: DEXAMETHASONE
     Indication: Inflammation
  4. KETOPROFEN [Suspect]
     Active Substance: KETOPROFEN
     Indication: Pain
  5. KETOPROFEN [Suspect]
     Active Substance: KETOPROFEN
     Indication: Analgesic therapy
  6. NEOMYCIN [Suspect]
     Active Substance: NEOMYCIN
     Indication: Antibiotic therapy
  7. NEOMYCIN [Suspect]
     Active Substance: NEOMYCIN
     Indication: Infection
  8. CHLORHEXIDINE [Concomitant]
     Active Substance: CHLORHEXIDINE
     Indication: Infection prophylaxis

REACTIONS (1)
  - Drug ineffective [Unknown]
